FAERS Safety Report 9164558 (Version 1)
Quarter: 2013Q1

REPORT INFORMATION
  Report Type: Spontaneous
  Country: FR (occurrence: FR)
  Receive Date: 20130315
  Receipt Date: 20130315
  Transmission Date: 20140127
  Serious: Yes (Hospitalization)
  Sender: FDA-Public Use
  Company Number: PHHY2013FR025163

PATIENT
  Age: 49 Year
  Sex: Female

DRUGS (6)
  1. LEPONEX [Suspect]
     Indication: SCHIZOPHRENIA
     Dosage: UNK
     Route: 048
  2. LEPONEX [Suspect]
     Dosage: 0.5 DF, IN THE EVENING
     Route: 048
     Dates: start: 20130206
  3. LOXAPAC [Concomitant]
     Dosage: UNK
  4. TEMESTA [Concomitant]
     Dosage: UNK
  5. STILNOX [Concomitant]
     Dosage: UNK
  6. VALIUM [Concomitant]
     Dosage: UNK

REACTIONS (2)
  - Loss of consciousness [Recovered/Resolved]
  - Back pain [Recovered/Resolved]
